FAERS Safety Report 5252745-1 (Version None)
Quarter: 2007Q1

REPORT INFORMATION
  Report Type: 
  Country: None (occurrence: None)
  Receive Date: 20070301
  Receipt Date: 20061121
  Transmission Date: 20070707
  Serious: No
  Sender: FDA-Public Use
  Company Number: US-GLAXOSMITHKLINE-A0628319A

PATIENT
  Age: 52 Year
  Sex: Female

DRUGS (5)
  1. LAMICTAL [Suspect]
     Indication: BIPOLAR DISORDER
     Dosage: 25MG PER DAY
     Route: 048
     Dates: start: 20060915
  2. LITHIUM CARBONATE [Concomitant]
  3. WELLBUTRIN [Concomitant]
  4. ANAFRANIL [Concomitant]
  5. AMBIEN [Concomitant]

REACTIONS (1)
  - LYMPHADENOPATHY [None]
